FAERS Safety Report 5553255-4 (Version None)
Quarter: 2007Q4

REPORT INFORMATION
  Report Type: 
  Country: None (occurrence: None)
  Receive Date: 20071212
  Receipt Date: 20070711
  Transmission Date: 20080405
  Serious: No
  Sender: FDA-Public Use
  Company Number: US-AMGEN-KDL227885

PATIENT
  Sex: Female

DRUGS (4)
  1. ENBREL [Suspect]
     Indication: ANKYLOSING SPONDYLITIS
     Route: 058
     Dates: start: 20070411
  2. ULTRAM [Concomitant]
  3. PRILOSEC [Concomitant]
  4. ORAL CONTRACEPTIVE NOS [Concomitant]

REACTIONS (3)
  - CONTUSION [None]
  - INJECTION SITE URTICARIA [None]
  - URTICARIA [None]
